FAERS Safety Report 20391517 (Version 1)
Quarter: 2022Q1

REPORT INFORMATION
  Report Type: Spontaneous
  Country: US (occurrence: None)
  Receive Date: 20220128
  Receipt Date: 20220128
  Transmission Date: 20220424
  Serious: Yes (Death)
  Sender: FDA-Public Use
  Company Number: None

PATIENT
  Age: 35 Month
  Sex: Male

DRUGS (6)
  1. VIGABATRIN [Suspect]
     Active Substance: VIGABATRIN
     Indication: Epilepsy
     Dosage: FREQUENCY : TWICE A DAY; GIVE 950 MG BY G-TUBE TWICE DAILY . MIX 2 PACKETS WITH 20ML OF WATER AND GI
     Route: 048
     Dates: start: 20190510, end: 20211209
  2. BACLOFEN [Concomitant]
     Active Substance: BACLOFEN
  3. KLONOPIN [Concomitant]
     Active Substance: CLONAZEPAM
  4. OMEPRAZOLE TAB [Concomitant]
  5. OXCARBAZEPIN TAB [Concomitant]
  6. TOPOMAX TAB [Concomitant]

REACTIONS (1)
  - Death [None]

NARRATIVE: CASE EVENT DATE: 20211209
